APPROVED DRUG PRODUCT: DELCOBESE
Active Ingredient: AMPHETAMINE ADIPATE; AMPHETAMINE SULFATE; DEXTROAMPHETAMINE ADIPATE; DEXTROAMPHETAMINE SULFATE
Strength: 3.75MG;3.75MG;3.75MG;3.75MG
Dosage Form/Route: TABLET;ORAL
Application: A083563 | Product #002
Applicant: TEVA PHARMACEUTICALS USA INC
Approved: Approved Prior to Jan 1, 1982 | RLD: No | RS: No | Type: DISCN